FAERS Safety Report 21791516 (Version 2)
Quarter: 2023Q1

REPORT INFORMATION
  Report Type: Other
  Country: GB (occurrence: GB)
  Receive Date: 20221228
  Receipt Date: 20230117
  Transmission Date: 20230417
  Serious: Yes (Life-Threatening, Hospitalization, Other)
  Sender: FDA-Public Use
  Company Number: None

PATIENT
  Age: 41 Year
  Sex: Female

DRUGS (5)
  1. HYDROCORTISONE [Suspect]
     Active Substance: HYDROCORTISONE
     Indication: Product used for unknown indication
     Dosage: 100 MILLIGRAM
     Route: 065
  2. HYDROCORTISONE [Suspect]
     Active Substance: HYDROCORTISONE
     Dosage: UNK, CYCLICAL
     Route: 065
  3. NIVOLUMAB [Suspect]
     Active Substance: NIVOLUMAB
     Indication: Colorectal cancer
     Dosage: 1 UNK, EVERY 4 WEEKS; CYCLE 1
     Route: 065
  4. NIVOLUMAB [Suspect]
     Active Substance: NIVOLUMAB
     Dosage: 480 MILLIGRAM, EVERY 4 WEEKS; CYCLE 2
     Route: 065
     Dates: start: 20210223, end: 20210223
  5. ACETAMINOPHEN [Concomitant]
     Active Substance: ACETAMINOPHEN
     Indication: Product used for unknown indication
     Dosage: 1 GRAM, 2 TIMES A WEEK
     Route: 065

REACTIONS (11)
  - Chest discomfort [Unknown]
  - Chest pain [Unknown]
  - Back pain [Unknown]
  - Dyspnoea [Recovered/Resolved]
  - Intestinal obstruction [Unknown]
  - Wound dehiscence [Unknown]
  - Condition aggravated [Unknown]
  - Necrotising fasciitis [Unknown]
  - Impaired healing [Unknown]
  - Septic shock [Unknown]
  - Stoma site cellulitis [Unknown]

NARRATIVE: CASE EVENT DATE: 20210223
